FAERS Safety Report 19118531 (Version 2)
Quarter: 2021Q2

REPORT INFORMATION
  Report Type: Report from Study
  Country: PA (occurrence: PA)
  Receive Date: 20210410
  Receipt Date: 20210528
  Transmission Date: 20210717
  Serious: Yes (Other)
  Sender: FDA-Public Use
  Company Number: NVSC2021PA074245

PATIENT
  Sex: Female
  Weight: 75 kg

DRUGS (10)
  1. FULVESTRANT. [Suspect]
     Active Substance: FULVESTRANT
     Indication: PRODUCT USED FOR UNKNOWN INDICATION
     Dosage: UNK
     Route: 065
  2. BLUE BERRY PLUS EYEVITAMIN [Concomitant]
     Indication: PRODUCT USED FOR UNKNOWN INDICATION
     Dosage: 1 UNK (DAILY, SINCE A YEAR AGO)
     Route: 065
  3. FULVESTRANT. [Suspect]
     Active Substance: FULVESTRANT
     Dosage: 500 MG, QMO
     Route: 065
     Dates: start: 202101
  4. GLIMEPIRIDE. [Concomitant]
     Active Substance: GLIMEPIRIDE
     Indication: BLOOD GLUCOSE ABNORMAL
     Dosage: 500 MG
     Route: 065
  5. TRANSFER FACTOR [Concomitant]
     Indication: IMMUNE SYSTEM DISORDER
     Dosage: UNK
     Route: 065
  6. MILK OF MAGNESIA [Concomitant]
     Active Substance: MAGNESIUM HYDROXIDE
     Indication: PRODUCT USED FOR UNKNOWN INDICATION
     Dosage: UNK
     Route: 065
  7. KISQALI [Suspect]
     Active Substance: RIBOCICLIB
     Dosage: 3 UNK (DAILY)
     Route: 065
     Dates: start: 20210412
  8. TRANSFER FACTOR [Concomitant]
     Dosage: 1 UNK (DAILY) (SINCE 3 YEARS AGO)
     Route: 065
  9. KISQALI [Suspect]
     Active Substance: RIBOCICLIB
     Indication: BREAST CANCER METASTATIC
     Dosage: 600 MG, QD
     Route: 048
  10. GLIMEPIRIDE. [Concomitant]
     Active Substance: GLIMEPIRIDE
     Dosage: 1 UNK (DAILY, SINCE 2 YEARS AGO)
     Route: 065

REACTIONS (7)
  - Hypersensitivity [Recovering/Resolving]
  - Stomatitis [Recovering/Resolving]
  - Spinal cord herniation [Unknown]
  - Renal failure [Unknown]
  - Scoliosis [Unknown]
  - Hypertension [Unknown]
  - Oral mucosal exfoliation [Recovering/Resolving]
